FAERS Safety Report 19787321 (Version 1)
Quarter: 2021Q3

REPORT INFORMATION
  Report Type: Spontaneous
  Country: US (occurrence: US)
  Receive Date: 20210903
  Receipt Date: 20210903
  Transmission Date: 20211014
  Serious: No
  Sender: FDA-Public Use
  Company Number: US-DECIPHERA PHARMACEUTICALS LLC-2021US000459

PATIENT
  Age: 65 Year
  Sex: Male

DRUGS (4)
  1. QINLOCK [Suspect]
     Active Substance: RIPRETINIB
     Indication: PROSTATE CANCER
     Dosage: 150 MILLIGRAM, QD
     Route: 048
     Dates: start: 20210330
  2. QINLOCK [Suspect]
     Active Substance: RIPRETINIB
     Indication: METASTASES TO LIVER
  3. QINLOCK [Suspect]
     Active Substance: RIPRETINIB
     Indication: CONNECTIVE TISSUE NEOPLASM
  4. QINLOCK [Suspect]
     Active Substance: RIPRETINIB
     Indication: SOFT TISSUE SARCOMA
     Dosage: 150 MILLIGRAM, QD
     Route: 048

REACTIONS (1)
  - Product use in unapproved indication [Unknown]

NARRATIVE: CASE EVENT DATE: 20210330
